FAERS Safety Report 20193961 (Version 1)
Quarter: 2021Q4

REPORT INFORMATION
  Report Type: Other
  Country: IT (occurrence: None)
  Receive Date: 20211216
  Receipt Date: 20211216
  Transmission Date: 20220303
  Serious: Yes (Other)
  Sender: FDA-Public Use
  Company Number: IT-ROCHE-2978922

PATIENT

DRUGS (1)
  1. ATEZOLIZUMAB [Suspect]
     Active Substance: ATEZOLIZUMAB
     Indication: Non-small cell lung cancer
     Route: 065

REACTIONS (18)
  - Neutropenia [Unknown]
  - Arthralgia [Recovered/Resolved]
  - Asthenia [Recovered/Resolved]
  - Dermatitis [Recovered/Resolved]
  - Diarrhoea [Recovered/Resolved]
  - Dyspnoea [Recovered/Resolved]
  - Infection [Recovered/Resolved]
  - Blood creatinine increased [Recovered/Resolved]
  - Hyperamylasaemia [Recovered/Resolved]
  - Hypertransaminasaemia [Recovered/Resolved]
  - Hypophosphataemia [Recovered/Resolved]
  - Hypothyroidism [Recovered/Resolved]
  - Neuropathy peripheral [Recovered/Resolved]
  - Pneumonitis [Recovered/Resolved]
  - Rash [Recovered/Resolved]
  - Lipase increased [Recovered/Resolved]
  - Sepsis [Recovered/Resolved]
  - Skin toxicity [Recovered/Resolved]
